FAERS Safety Report 15906827 (Version 2)
Quarter: 2019Q2

REPORT INFORMATION
  Report Type: Other
  Country: JP (occurrence: JP)
  Receive Date: 20190204
  Receipt Date: 20190412
  Transmission Date: 20190711
  Serious: Yes (Life-Threatening, Hospitalization)
  Sender: FDA-Public Use
  Company Number: JP-ASPEN-GLO2019JP000809

PATIENT
  Age: 66 Year
  Sex: Female

DRUGS (13)
  1. POMALIDOMIDE [Suspect]
     Active Substance: POMALIDOMIDE
     Indication: PLASMA CELL MYELOMA
     Dosage: POM/DEX THERAPY (POMALIDOMIDE 4MG ON DAYS 1-21, DEX 20 MG ON DAYS 1, 8,15, AND 22)
     Route: 065
  2. LENALIDOMIDE [Suspect]
     Active Substance: LENALIDOMIDE
     Indication: PLASMA CELL MYELOMA
     Dosage: [LEN/ DEX THERAPY - LENALIDOMIDE 4 MG ON DAYS 1-21, DEX 40 MG ON DAYS 1, 8, 15, AND 22 OF EACH 28-DA
     Route: 065
  3. VINCRISTINE [Suspect]
     Active Substance: VINCRISTINE
     Indication: PLASMA CELL MYELOMA
     Dosage: SALVAGE VCAP THERAPY (VINCRISTINE 1 MG/BODY ON DAY 1, CYCLOPHOSPHAMIDE 100 MG/BODY ON DAYS 1- 4, DOX
     Route: 065
  4. DECADRON [Suspect]
     Active Substance: DEXAMETHASONE
     Dosage: POM/DEX THERAPY (POMALIDOMIDE 4MG ON DAYS 1-21, DEX 20 MG ON DAYS 1, 8,15, AND 22)
     Route: 065
  5. PREDNISOLONE. [Suspect]
     Active Substance: PREDNISOLONE
     Indication: PLASMA CELL MYELOMA
     Dosage: SALVAGE VCAP THERAPY (VINCRISTINE 1 MG/BODY ON DAY 1, CYCLOPHOSPHAMIDE 100 MG/BODY ON DAYS 1- 4, DOX
     Route: 065
  6. DOXORUBICIN [Suspect]
     Active Substance: DOXORUBICIN
     Indication: PLASMA CELL MYELOMA
     Dosage: SALVAGE VCAP THERAPY (VINCRISTINE 1 MG/BODY ON DAY 1, CYCLOPHOSPHAMIDE 100 MG/BODY ON DAYS 1- 4, DOX
     Route: 065
  7. DECADRON [Suspect]
     Active Substance: DEXAMETHASONE
     Indication: PLASMA CELL MYELOMA
     Dosage: [CBD THERAPY - ON DAYS 1, 8, 15, AND 22 OF EACH 28-DAY CYCLE]
     Route: 065
  8. CYCLOPHOSPHAMIDE. [Suspect]
     Active Substance: CYCLOPHOSPHAMIDE
     Dosage: 400 MG/BODY [CBD THERAPY - ON DAYS 1, 8, 15, AND 22 OF EACH 28-DAY CYCLE]
     Route: 065
  9. CYCLOPHOSPHAMIDE. [Suspect]
     Active Substance: CYCLOPHOSPHAMIDE
     Dosage: HIGH-DOSE CYCLOPHOSPHAMIDE
     Route: 065
  10. DECADRON [Suspect]
     Active Substance: DEXAMETHASONE
     Dosage: [LEN/ DEX THERAPY - LENALIDOMIDE 4 MG ON DAYS 1-21, DEX 40 MG ON DAYS 1, 8, 15, AND 22 OF EACH 28-DA
     Route: 065
  11. ALKERAN [Suspect]
     Active Substance: MELPHALAN
     Indication: PLASMA CELL MYELOMA
     Dosage: HIGH-DOSE MELPHALAN
     Route: 065
  12. CYCLOPHOSPHAMIDE. [Suspect]
     Active Substance: CYCLOPHOSPHAMIDE
     Indication: PLASMA CELL MYELOMA
     Dosage: SALVAGE VCAP THERAPY (VINCRISTINE 1MG/BODY ON DAY 1, CYCLOPHOSPHAMIDE 100 MG/BODY ON DAYS 1- 4, DOXO
     Route: 065
  13. BORTEZOMIB. [Suspect]
     Active Substance: BORTEZOMIB
     Indication: PLASMA CELL MYELOMA
     Dosage: [CBD THERAPY - ON DAYS 1, 8, 15, AND 22 OF EACH 28-DAY CYCLE]
     Route: 065

REACTIONS (1)
  - Adenovirus infection [Recovered/Resolved]
